FAERS Safety Report 9251233 (Version 1)
Quarter: 2013Q1

REPORT INFORMATION
  Report Type: Spontaneous
  Country: US (occurrence: None)
  Receive Date: 20130305
  Receipt Date: 20130305
  Transmission Date: 20140127
  Serious: Yes (Other)
  Sender: FDA-Public Use
  Company Number: 163-21880-12082316

PATIENT
  Age: 43 Year
  Sex: Female
  Weight: 81.65 kg

DRUGS (9)
  1. REVLIMID [Suspect]
     Indication: CUTANEOUS LUPUS ERYTHEMATOSUS
     Dosage: 1 IN 1 D
     Route: 048
     Dates: start: 201003
  2. ALPRAZOLAM (ALPRAZOLAM) [Suspect]
  3. ASPIRIN (ACETYLSALICYLIC ACID) [Suspect]
  4. HYDROCODONE (HYDROCODONE) [Suspect]
  5. HYDROXYCHLOROQUINE (HYDROXYCHLOROQUINE) [Concomitant]
  6. LEXAPRO (ESCITALOPRAM OXALATE) [Concomitant]
  7. METHOCARBAMOL (METHOCARBAMOL) [Concomitant]
  8. PRILOSEC [Concomitant]
  9. ANTIBIOTICS (ANTIBIOTICS) [Concomitant]

REACTIONS (3)
  - Urinary tract infection [None]
  - Fungal infection [None]
  - Local swelling [None]
